FAERS Safety Report 14176157 (Version 1)
Quarter: 2017Q4

REPORT INFORMATION
  Report Type: Spontaneous
  Country: IT (occurrence: IT)
  Receive Date: 20171109
  Receipt Date: 20171109
  Transmission Date: 20180321
  Serious: Yes (Death, Life-Threatening, Hospitalization, Other)
  Sender: FDA-Public Use
  Company Number: IT-B. BRAUN MEDICAL INC.-2033726

PATIENT
  Age: 76 Year
  Sex: Male

DRUGS (4)
  1. GLYCINE. [Suspect]
     Active Substance: GLYCINE
     Route: 033
  2. 3% AND 5% SODIUM CHLORIDE INJECTIONS USP 0264-7805-10 [Suspect]
     Active Substance: SODIUM CHLORIDE
     Indication: HYPONATRAEMIA
  3. FUROSEMIDE. [Suspect]
     Active Substance: FUROSEMIDE
  4. VOLUVEN [Concomitant]
     Active Substance: HYDROXYETHYL STARCH 130/0.4

REACTIONS (5)
  - Hyponatraemia [None]
  - Brain oedema [None]
  - Atrial fibrillation [None]
  - Osmotic demyelination syndrome [None]
  - Hyponatraemic encephalopathy [None]
